FAERS Safety Report 5348896-3 (Version None)
Quarter: 2007Q2

REPORT INFORMATION
  Report Type: 
  Country: None (occurrence: None)
  Receive Date: 20070607
  Receipt Date: 20070528
  Transmission Date: 20071010
  Serious: Yes (Other)
  Sender: FDA-Public Use
  Company Number: PHBS2007JP08939

PATIENT
  Age: 74 Year
  Sex: Male

DRUGS (1)
  1. TEGRETOL [Suspect]
     Dosage: 100 MG/DAY
     Route: 048
     Dates: start: 20050901, end: 20051001

REACTIONS (1)
  - ERYTHEMA MULTIFORME [None]
